FAERS Safety Report 9026203 (Version 1)
Quarter: 2013Q1

REPORT INFORMATION
  Report Type: Spontaneous
  Country: US (occurrence: None)
  Receive Date: 20130108
  Receipt Date: 20130108
  Transmission Date: 20140127
  Serious: Yes (Disabling, Other)
  Sender: FDA-Public Use
  Company Number: 2012AP004457

PATIENT
  Sex: Female

DRUGS (3)
  1. ALENDRONATE SODIUM TABLETS [Suspect]
     Indication: OSTEOPOROSIS
     Dates: start: 200810, end: 200909
  2. IBANDRONATE SODIUM [Suspect]
     Dates: start: 200702, end: 200805
  3. ALENDRONATE SODIUM TABLETS [Suspect]
     Dates: start: 2000, end: 200611

REACTIONS (9)
  - Anxiety [None]
  - Femur fracture [None]
  - Stress fracture [None]
  - Pain [None]
  - Low turnover osteopathy [None]
  - Multiple injuries [None]
  - Fear of disease [None]
  - Emotional distress [None]
  - Quality of life decreased [None]
